FAERS Safety Report 11081012 (Version 2)
Quarter: 2015Q2

REPORT INFORMATION
  Report Type: Spontaneous
  Country: US (occurrence: US)
  Receive Date: 20150501
  Receipt Date: 20150506
  Transmission Date: 20150821
  Serious: Yes (Hospitalization, Other)
  Sender: FDA-Public Use
  Company Number: US-JNJFOC-20150423065

PATIENT
  Age: 87 Year
  Sex: Male

DRUGS (5)
  1. LASIX [Concomitant]
     Active Substance: FUROSEMIDE
  2. ZOLOFT [Concomitant]
     Active Substance: SERTRALINE HYDROCHLORIDE
  3. IMBRUVICA [Suspect]
     Active Substance: IBRUTINIB
     Indication: CHRONIC LYMPHOCYTIC LEUKAEMIA
     Route: 048
     Dates: start: 20150218
  4. METOPROLOL [Concomitant]
     Active Substance: METOPROLOL
  5. OMEPRAZOLE. [Concomitant]
     Active Substance: OMEPRAZOLE

REACTIONS (5)
  - Pleural effusion [Recovering/Resolving]
  - Blood creatinine increased [Unknown]
  - Dyspnoea [Unknown]
  - Blood urea increased [Unknown]
  - Traumatic haemothorax [Unknown]

NARRATIVE: CASE EVENT DATE: 201503
